FAERS Safety Report 21809262 (Version 1)
Quarter: 2023Q1

REPORT INFORMATION
  Report Type: Spontaneous
  Country: CH (occurrence: CH)
  Receive Date: 20230103
  Receipt Date: 20230103
  Transmission Date: 20230418
  Serious: Yes (Other)
  Sender: FDA-Public Use
  Company Number: CH-TEVA-2022-CH-2841622

PATIENT
  Sex: Female

DRUGS (3)
  1. CISPLATIN [Suspect]
     Active Substance: CISPLATIN
     Indication: Cholangiocarcinoma
     Dosage: 1000 TO 1200MG ABSOLUTE PER ADMINISTRATION
     Route: 065
  2. GEMCITABINE [Suspect]
     Active Substance: GEMCITABINE
     Indication: Cholangiocarcinoma
     Dosage: 1000 TO 1200MG?ABSOLUTE PER ADMINISTRATION
     Route: 065
  3. HERCEPTIN [Suspect]
     Active Substance: TRASTUZUMAB
     Indication: Cholangiocarcinoma
     Dosage: 1000 TO 1200MG?ABSOLUTE PER ADMINISTRATION
     Route: 065

REACTIONS (1)
  - Renal disorder [Unknown]
